FAERS Safety Report 11570366 (Version 2)
Quarter: 2015Q4

REPORT INFORMATION
  Report Type: Other
  Country: JP (occurrence: JP)
  Receive Date: 20150929
  Receipt Date: 20151030
  Transmission Date: 20160304
  Serious: Yes (Other)
  Sender: FDA-Public Use
  Company Number: JP-GUERBET LLC-1042383

PATIENT
  Age: 72 Year
  Sex: Female

DRUGS (3)
  1. HISTOACRYL [Concomitant]
     Active Substance: ENBUCRILATE
  2. LIPIODOL [Suspect]
     Active Substance: ETHIODIZED OIL
     Indication: EMBOLISM
  3. OLDAMIN [Concomitant]
     Active Substance: ETHANOLAMINE OLEATE

REACTIONS (1)
  - Ascites [Recovering/Resolving]
